FAERS Safety Report 6599222-3 (Version None)
Quarter: 2010Q1

REPORT INFORMATION
  Report Type: 
  Country: None (occurrence: None)
  Receive Date: 20100224
  Receipt Date: 20100212
  Transmission Date: 20100710
  Serious: Yes (Other)
  Sender: FDA-Public Use
  Company Number: PHEH2010US02498

PATIENT
  Age: 47 Year
  Sex: Female

DRUGS (2)
  1. DIOVAN [Suspect]
     Indication: HYPERTENSION
     Dosage: UNK
     Route: 048
     Dates: start: 20080501, end: 20090424
  2. LISINOPRIL [Suspect]
     Indication: HYPERTENSION
     Dosage: UNK
     Dates: end: 20090901

REACTIONS (4)
  - ABDOMINAL DISCOMFORT [None]
  - ANGIOEDEMA [None]
  - ENTERITIS [None]
  - LYMPHOID TISSUE HYPERPLASIA [None]
